FAERS Safety Report 7761679-X (Version None)
Quarter: 2011Q3

REPORT INFORMATION
  Report Type: 
  Country: None (occurrence: None)
  Receive Date: 20110920
  Receipt Date: 20110907
  Transmission Date: 20111222
  Serious: Yes (Disabling, Other)
  Sender: FDA-Public Use
  Company Number: PHHY2010HU59717

PATIENT
  Sex: Male

DRUGS (6)
  1. MAGNESIUM [Concomitant]
     Dosage: UNK
  2. MYDETON [Concomitant]
     Dosage: UNK
  3. ALGOPYRIN [Concomitant]
     Dosage: UNK
  4. FLUTICASONE PROPIONATE/SALMETEROL [Concomitant]
     Dosage: UNK UKN, UNK
  5. LESCOL XL [Suspect]
     Indication: HYPERCHOLESTEROLAEMIA
     Dosage: 80 MG DAILY
     Route: 048
     Dates: start: 20081201, end: 20100201
  6. SPIRIVA [Concomitant]
     Dosage: UNK

REACTIONS (21)
  - LEFT VENTRICULAR FAILURE [None]
  - MUSCLE ATROPHY [None]
  - NERVOUS SYSTEM DISORDER [None]
  - METABOLIC MYOPATHY [None]
  - MYALGIA [None]
  - ARTHRALGIA [None]
  - HYPOAESTHESIA [None]
  - LYMPHADENOPATHY [None]
  - BLOOD CREATINE PHOSPHOKINASE INCREASED [None]
  - MYOPATHY [None]
  - CONDITION AGGRAVATED [None]
  - INTERVERTEBRAL DISC DISORDER [None]
  - PAIN IN EXTREMITY [None]
  - GAIT DISTURBANCE [None]
  - MUSCULAR WEAKNESS [None]
  - ASTHENIA [None]
  - SPINAL OSTEOARTHRITIS [None]
  - WEIGHT DECREASED [None]
  - FIBROSIS [None]
  - OSTEOARTHRITIS [None]
  - NECK PAIN [None]
